FAERS Safety Report 16353269 (Version 1)
Quarter: 2019Q2

REPORT INFORMATION
  Report Type: Spontaneous
  Country: US (occurrence: US)
  Receive Date: 20190418
  Receipt Date: 20190418
  Transmission Date: 20190711
  Serious: No
  Sender: FDA-Public Use
  Company Number: None

PATIENT
  Age: 74 Year
  Sex: Female
  Weight: 71.67 kg

DRUGS (13)
  1. ASPIRIN EC 325 MG [Concomitant]
     Active Substance: ASPIRIN
  2. REPATHA [Suspect]
     Active Substance: EVOLOCUMAB
  3. CARVEDILOL 12.5 MG [Concomitant]
     Active Substance: CARVEDILOL
  4. FUROSEMIDE 20 MG TABLET [Concomitant]
     Active Substance: FUROSEMIDE
  5. MUCINEX OR [Concomitant]
  6. AMLODIPINE 10 MG TABLET [Concomitant]
     Active Substance: AMLODIPINE BESYLATE
  7. CICLOPIROX 8% SOLUTION [Concomitant]
  8. PANTOPRAZOLE 40 MG TABLET [Concomitant]
     Active Substance: PANTOPRAZOLE
  9. SETRALINE 100 MG TABLET [Concomitant]
  10. GEMFIBROZIL 600 MG TABLET [Concomitant]
  11. VITAMIN D2 (ERGOCALCIFEROL) 50000 UNITS CAPSULE [Concomitant]
  12. LISINOPRIL 40 MG TABLET [Concomitant]
  13. MOMETAONE 50 MCG/ACT NASAL SPRAY [Concomitant]

REACTIONS (8)
  - Fatigue [None]
  - Irritability [None]
  - Weight decreased [None]
  - Oral discomfort [None]
  - Chills [None]
  - Nasopharyngitis [None]
  - Alopecia [None]
  - Somnolence [None]

NARRATIVE: CASE EVENT DATE: 20190117
